FAERS Safety Report 5930772-6 (Version None)
Quarter: 2008Q4

REPORT INFORMATION
  Report Type: 
  Country: None (occurrence: None)
  Receive Date: 20081027
  Receipt Date: 20081016
  Transmission Date: 20090506
  Serious: Yes (Other)
  Sender: FDA-Public Use
  Company Number: GB-JNJFOC-20081003978

PATIENT
  Age: 15 Month
  Sex: Female
  Weight: 10 kg

DRUGS (18)
  1. MICONAZOLE [Suspect]
     Route: 048
  2. MICONAZOLE [Suspect]
     Indication: FUNGAL INFECTION
     Route: 048
  3. ERYTHROMYCIN [Interacting]
     Indication: DRUG USE FOR UNKNOWN INDICATION
     Route: 065
  4. TACROLIMUS [Interacting]
     Indication: IMMUNOSUPPRESSION
     Route: 048
  5. ACYCLOVIR [Concomitant]
     Indication: EPSTEIN-BARR VIRUS INFECTION
     Route: 048
  6. AMPHOTERICIN B [Concomitant]
     Indication: PROPHYLAXIS
     Route: 048
  7. ASPIRIN [Concomitant]
     Indication: ANTIPLATELET THERAPY
     Route: 048
  8. CODEINE SUL TAB [Concomitant]
     Indication: GASTROINTESTINAL HYPERMOTILITY
     Route: 048
  9. COLOMYCIN [Concomitant]
     Indication: PROPHYLAXIS
     Route: 048
  10. CO-TRIMOXAZOLE [Concomitant]
     Indication: PROPHYLAXIS
     Route: 048
  11. DIPYRIDAMOLE [Concomitant]
     Indication: ANTIPLATELET THERAPY
     Route: 048
  12. GENTAMICIN [Concomitant]
     Indication: INFECTION
     Route: 048
  13. MAGNESIUM GLYCEROPHOSPHATE [Concomitant]
     Indication: HYPOMAGNESAEMIA
     Route: 048
  14. MYCOPHENOLATE MOFETIL [Concomitant]
     Indication: IMMUNOSUPPRESSION
     Route: 048
  15. OMEPRAZOLE [Concomitant]
     Route: 048
  16. PREDNISOLONE [Concomitant]
     Indication: IMMUNOSUPPRESSION
     Route: 048
  17. SODIUM BICARBONATE [Concomitant]
     Route: 048
  18. URSODIOL [Concomitant]
     Route: 048

REACTIONS (2)
  - DRUG INTERACTION [None]
  - DRUG LEVEL INCREASED [None]
